FAERS Safety Report 15352653 (Version 2)
Quarter: 2018Q4

REPORT INFORMATION
  Report Type: Spontaneous
  Country: GB (occurrence: GB)
  Receive Date: 20180905
  Receipt Date: 20181005
  Transmission Date: 20190204
  Serious: Yes (Death, Hospitalization, Other)
  Sender: FDA-Public Use
  Company Number: PHHY2018GB090271

PATIENT
  Age: 50 Year
  Sex: Male

DRUGS (4)
  1. OCTREOTIDE, LONG ACTING [Suspect]
     Active Substance: OCTREOTIDE ACETATE
     Indication: PRODUCT USED FOR UNKNOWN INDICATION
     Dosage: 30 MG, QMO (28 DAY)
     Route: 065
  2. TELOTRISTAT ETHYL [Suspect]
     Active Substance: TELOTRISTAT ETHYL
     Indication: DIARRHOEA
  3. LANREOTIDE [Suspect]
     Active Substance: LANREOTIDE
     Indication: PRODUCT USED FOR UNKNOWN INDICATION
     Dosage: UNK
     Route: 065
  4. TELOTRISTAT ETHYL [Suspect]
     Active Substance: TELOTRISTAT ETHYL
     Indication: CARCINOID SYNDROME
     Dosage: 250 MG, Q8H
     Route: 065

REACTIONS (5)
  - Pyrexia [Fatal]
  - Paracentesis [Fatal]
  - General physical health deterioration [Fatal]
  - Malignant neoplasm progression [Fatal]
  - Pain [Fatal]

NARRATIVE: CASE EVENT DATE: 2016
